FAERS Safety Report 9849043 (Version 1)
Quarter: 2013Q4

REPORT INFORMATION
  Report Type: Spontaneous
  Country: US (occurrence: None)
  Receive Date: 20131224
  Receipt Date: 20131224
  Transmission Date: 20140711
  Serious: Yes (Other)
  Sender: FDA-Public Use
  Company Number: PHEH2013US001669

PATIENT
  Age: 54 Year
  Sex: Female

DRUGS (2)
  1. MYFORTIC [Suspect]
     Indication: RENAL TRANSPLANT
     Dosage: 4 PER DAY,
     Route: 048
  2. COUMADINE (WARFARIN SODIUM) [Concomitant]

REACTIONS (2)
  - Hypertension [None]
  - Haemorrhage [None]
